FAERS Safety Report 7085415-8 (Version None)
Quarter: 2010Q4

REPORT INFORMATION
  Report Type: 
  Country: None (occurrence: None)
  Receive Date: 20101105
  Receipt Date: 20101029
  Transmission Date: 20110411
  Serious: Yes (Death)
  Sender: FDA-Public Use
  Company Number: JP-PFIZER INC-2010140259

PATIENT
  Age: 29 Year
  Sex: Female
  Weight: 38.4 kg

DRUGS (16)
  1. SILDENAFIL CITRATE [Suspect]
     Dosage: 20 MG, 2X/DAY
     Route: 048
     Dates: start: 20080715, end: 20081014
  2. SILDENAFIL CITRATE [Suspect]
     Dosage: 20 MG, 3X/DAY
     Route: 048
     Dates: start: 20081015, end: 20081022
  3. MUCOSTA [Concomitant]
     Dosage: UNK
     Route: 048
     Dates: start: 20081015
  4. SELENICA-R [Concomitant]
     Dosage: UNK
     Route: 048
     Dates: start: 20081015
  5. BIOFERMIN R [Concomitant]
     Dosage: UNK
     Dates: start: 20081015
  6. BLOPRESS [Concomitant]
     Dosage: UNK
     Route: 048
     Dates: start: 20081015
  7. RENIVACE [Concomitant]
     Dosage: UNK
     Route: 048
     Dates: start: 20081015
  8. ARTIST [Concomitant]
     Dosage: UNK
     Route: 048
     Dates: start: 20081015
  9. DIGOSIN [Concomitant]
     Dosage: UNK
     Route: 048
     Dates: start: 20081015
  10. NEUQUINON [Concomitant]
     Dosage: UNK
     Route: 048
     Dates: start: 20081015
  11. ZYLORIC ^FAES^ [Concomitant]
     Dosage: UNK
     Route: 048
     Dates: start: 20081015
  12. LASIX [Concomitant]
     Dosage: UNK
     Route: 048
     Dates: start: 20081015
  13. GASTER [Concomitant]
     Dosage: UNK
     Route: 048
     Dates: start: 20081015
  14. BERAPROST SODIUM [Concomitant]
     Dosage: UNK
     Route: 048
     Dates: start: 20081015
  15. TRACLEER [Concomitant]
     Dosage: UNK
     Route: 048
     Dates: start: 20081015
  16. OXYGEN [Concomitant]
     Indication: PULMONARY HYPERTENSION
     Dosage: UNK

REACTIONS (1)
  - DEATH [None]
